FAERS Safety Report 7253430-7 (Version None)
Quarter: 2011Q1

REPORT INFORMATION
  Report Type: 
  Country: None (occurrence: None)
  Receive Date: 20110129
  Receipt Date: 20100301
  Transmission Date: 20110831
  Serious: Yes (Other)
  Sender: FDA-Public Use
  Company Number: US-ABBOTT-10P-163-0629454-00

PATIENT
  Sex: Female
  Weight: 68.1 kg

DRUGS (1)
  1. HUMIRA [Suspect]
     Indication: CROHN'S DISEASE
     Route: 058
     Dates: start: 20080501

REACTIONS (5)
  - BRONCHITIS [None]
  - OSTEOPOROSIS [None]
  - KIDNEY INFECTION [None]
  - NASOPHARYNGITIS [None]
  - URINARY TRACT INFECTION [None]
